FAERS Safety Report 5788839-1 (Version None)
Quarter: 2008Q2

REPORT INFORMATION
  Report Type: 
  Country: None (occurrence: None)
  Receive Date: 20080626
  Receipt Date: 20080623
  Transmission Date: 20081010
  Serious: Yes (Death, Other)
  Sender: FDA-Public Use
  Company Number: NO-RB-002107-08

PATIENT
  Age: 27 Year
  Sex: Male

DRUGS (4)
  1. BUPRENORPHINE HYDROCHLORIDE [Suspect]
     Route: 060
  2. BUPRENORPHINE HYDROCHLORIDE [Suspect]
     Route: 060
  3. BUPRENORPHINE HYDROCHLORIDE [Suspect]
     Route: 060
  4. BUPRENORPHINE HYDROCHLORIDE [Suspect]
     Route: 060

REACTIONS (2)
  - COMPLETED SUICIDE [None]
  - WITHDRAWAL SYNDROME [None]
